FAERS Safety Report 13819495 (Version 3)
Quarter: 2018Q2

REPORT INFORMATION
  Report Type: Report from Study
  Country: US (occurrence: US)
  Receive Date: 20170801
  Receipt Date: 20180501
  Transmission Date: 20180711
  Serious: No
  Sender: FDA-Public Use
  Company Number: US-AMGEN-USASL2017090459

PATIENT
  Age: 89 Year
  Sex: Female

DRUGS (1)
  1. IMLYGIC [Suspect]
     Active Substance: TALIMOGENE LAHERPAREPVEC
     Indication: MALIGNANT MELANOMA
     Dosage: 10^8, Q2WK
     Route: 065
     Dates: end: 2017

REACTIONS (2)
  - Injection site haemorrhage [Unknown]
  - Refusal of treatment by relative [Unknown]

NARRATIVE: CASE EVENT DATE: 2017
